FAERS Safety Report 22148679 (Version 1)
Quarter: 2023Q1

REPORT INFORMATION
  Report Type: Spontaneous
  Country: CN (occurrence: CN)
  Receive Date: 20230328
  Receipt Date: 20230328
  Transmission Date: 20230418
  Serious: Yes (Hospitalization)
  Sender: FDA-Public Use
  Company Number: CN-ANIPHARMA-2023-CN-000148

PATIENT
  Age: 59 Year
  Sex: Female
  Weight: 48 kg

DRUGS (1)
  1. FLUVOXAMINE [Suspect]
     Active Substance: FLUVOXAMINE
     Indication: Anxiety disorder
     Dosage: 50 MG (50 MG,1 IN 1 D), 150 MG (150 MG,1 IN 1 D)
     Route: 048
     Dates: start: 20230303, end: 20230307

REACTIONS (2)
  - Hypotension [Recovering/Resolving]
  - Dizziness [Recovering/Resolving]

NARRATIVE: CASE EVENT DATE: 20230307
